FAERS Safety Report 21874615 (Version 1)
Quarter: 2023Q1

REPORT INFORMATION
  Report Type: Spontaneous
  Country: CN (occurrence: None)
  Receive Date: 20230117
  Receipt Date: 20230117
  Transmission Date: 20230417
  Serious: Yes (Other)
  Sender: FDA-Public Use
  Company Number: 2023A008745

PATIENT
  Age: 84 Year

DRUGS (2)
  1. OSIMERTINIB [Suspect]
     Active Substance: OSIMERTINIB
     Indication: Non-small cell lung cancer stage IV
     Route: 048
  2. DURVALUMAB [Concomitant]
     Active Substance: DURVALUMAB
     Indication: Non-small cell lung cancer

REACTIONS (2)
  - Drug resistance [Unknown]
  - Malignant transformation [Unknown]
